FAERS Safety Report 5505729-X (Version None)
Quarter: 2007Q4

REPORT INFORMATION
  Report Type: 
  Country: None (occurrence: None)
  Receive Date: 20071102
  Receipt Date: 20071022
  Transmission Date: 20080405
  Serious: Yes (Hospitalization)
  Sender: FDA-Public Use
  Company Number: US-SANOFI-SYNTHELABO-F01200701345

PATIENT
  Sex: Male
  Weight: 106.12 kg

DRUGS (15)
  1. LORAZEPAM [Concomitant]
     Dosage: UNK
     Route: 065
     Dates: start: 20061206
  2. PANTOPRAZOLE SODIUM [Concomitant]
     Dosage: UNK
     Route: 065
     Dates: start: 20061205
  3. ATORVASTATIN CALCIUM [Concomitant]
     Dosage: UNK
     Route: 065
     Dates: start: 20061205
  4. LISINOPRIL [Concomitant]
     Dosage: UNK
     Route: 065
     Dates: start: 20061205
  5. METOPROLOL [Concomitant]
     Dosage: UNK
     Route: 065
     Dates: start: 20061205
  6. ASPIRIN [Concomitant]
     Dosage: UNK
     Route: 065
     Dates: start: 20061205
  7. CLOPIDOGREL [Suspect]
     Indication: ACUTE CORONARY SYNDROME
     Dosage: UNK
     Route: 065
     Dates: start: 20061205
  8. MIDAZOLAM HYDROCHLORIDE [Concomitant]
     Dosage: UNK
     Route: 065
     Dates: start: 20061205, end: 20061205
  9. ADENOSINE [Concomitant]
     Dosage: UNK
     Route: 065
     Dates: start: 20061205, end: 20061205
  10. VERAPAMIL [Concomitant]
     Dosage: UNK
     Route: 065
     Dates: start: 20061205, end: 20061205
  11. GLYCERYL TRINITRATE [Concomitant]
     Dosage: UNK
     Route: 065
     Dates: start: 20061205, end: 20061205
  12. EPTIFIBATIDE [Concomitant]
     Dosage: UNK
     Route: 065
     Dates: start: 20061205, end: 20061206
  13. HEPARIN [Concomitant]
     Dosage: UNK
     Route: 065
     Dates: start: 20061205, end: 20061205
  14. FENTANYL [Concomitant]
     Dosage: UNK
     Route: 065
     Dates: start: 20061205, end: 20061205
  15. SODIUM CHLORIDE [Concomitant]
     Dosage: UNK
     Route: 065
     Dates: start: 20061205, end: 20061205

REACTIONS (1)
  - ARTERIOVENOUS FISTULA [None]
